FAERS Safety Report 16377240 (Version 2)
Quarter: 2019Q3

REPORT INFORMATION
  Report Type: Report from Study
  Country: GB (occurrence: GB)
  Receive Date: 20190531
  Receipt Date: 20190726
  Transmission Date: 20191004
  Serious: Yes (Other)
  Sender: FDA-Public Use
  Company Number: GB-JNJFOC-20190535488

PATIENT
  Sex: Male

DRUGS (5)
  1. CEFALEXIN [Concomitant]
     Active Substance: CEPHALEXIN
     Indication: URINARY TRACT INFECTION
     Dosage: 3 A DAY FOR 7 DAYS
     Route: 065
  2. SIMVASTATIN. [Concomitant]
     Active Substance: SIMVASTATIN
     Indication: URINARY TRACT INFECTION
     Dosage: 3 A DAY FOR 7 DAYS
     Route: 065
  3. CEFALEXIN [Concomitant]
     Active Substance: CEPHALEXIN
     Route: 065
  4. SIMVASTATIN. [Concomitant]
     Active Substance: SIMVASTATIN
     Route: 065
  5. STELARA [Suspect]
     Active Substance: USTEKINUMAB
     Indication: PSORIATIC ARTHROPATHY
     Dosage: PRE-FILLED SYRINGE
     Route: 058
     Dates: start: 20161216

REACTIONS (3)
  - Calculus bladder [Unknown]
  - Urinary tract infection [Unknown]
  - Upper respiratory tract infection [Recovered/Resolved]
